FAERS Safety Report 22699617 (Version 3)
Quarter: 2024Q2

REPORT INFORMATION
  Report Type: Spontaneous
  Country: US (occurrence: US)
  Receive Date: 20230713
  Receipt Date: 20240604
  Transmission Date: 20240715
  Serious: No
  Sender: FDA-Public Use
  Company Number: US-002147023-NVSC2023US155362

PATIENT
  Sex: Female

DRUGS (1)
  1. VOTRIENT [Suspect]
     Active Substance: PAZOPANIB HYDROCHLORIDE
     Indication: Renal cancer
     Dosage: 400 MG, QD
     Route: 048
     Dates: start: 202201

REACTIONS (5)
  - Pain [Unknown]
  - Pain of skin [Unknown]
  - Palmar-plantar erythrodysaesthesia syndrome [Unknown]
  - Swelling [Unknown]
  - Oedema [Unknown]
